FAERS Safety Report 10622011 (Version 1)
Quarter: 2014Q4

REPORT INFORMATION
  Report Type: Spontaneous
  Country: US (occurrence: US)
  Receive Date: 20141203
  Receipt Date: 20141203
  Transmission Date: 20150529
  Serious: Yes (Hospitalization)
  Sender: FDA-Public Use
  Company Number: US-ASTELLAS-2014US018616

PATIENT
  Sex: Male

DRUGS (1)
  1. PROGRAF [Suspect]
     Active Substance: TACROLIMUS\TACROLIMUS ANHYDROUS
     Indication: HEART TRANSPLANT REJECTION
     Dosage: 3 MG, 1 MG IN THE MORNING AND 2 MG IN THE EVENING
     Route: 048

REACTIONS (1)
  - Complications of transplanted heart [Unknown]
